FAERS Safety Report 25713873 (Version 2)
Quarter: 2025Q3

REPORT INFORMATION
  Report Type: Spontaneous
  Country: US (occurrence: US)
  Receive Date: 20250822
  Receipt Date: 20250828
  Transmission Date: 20251020
  Serious: No
  Sender: AMGEN
  Company Number: US-AMGEN-USASP2025164786

PATIENT
  Age: 44 Year
  Sex: Male

DRUGS (1)
  1. NPLATE [Suspect]
     Active Substance: ROMIPLOSTIM
     Indication: Thrombocytopenia
     Dosage: 322 MICROGRAM, QWK (SPOILAGE: 250MCG (1 X 250MCG) DOSE ORDERED: 322MCG)
     Route: 065

REACTIONS (1)
  - Off label use [Unknown]
